FAERS Safety Report 15611390 (Version 1)
Quarter: 2018Q4

REPORT INFORMATION
  Report Type: Other
  Country: ES (occurrence: ES)
  Receive Date: 20181113
  Receipt Date: 20181113
  Transmission Date: 20190205
  Serious: Yes (Hospitalization, Other)
  Sender: FDA-Public Use
  Company Number: ES-APOTEX-2018AP024452

PATIENT
  Age: 85 Year
  Sex: Female

DRUGS (4)
  1. SINTROM [Concomitant]
     Active Substance: ACENOCOUMAROL
     Indication: ATRIAL FIBRILLATION
     Dosage: 9 MG, UNK, EVERY ONE WEEK, DTS: 9MG
     Route: 048
     Dates: start: 20080101
  2. ADOLONTA [Concomitant]
     Active Substance: TRAMADOL HYDROCHLORIDE
     Indication: PRODUCT USED FOR UNKNOWN INDICATION
     Dosage: 150 MG, UNK, EVERY 12 HOUR, 1-0-1
     Route: 048
     Dates: start: 20170811
  3. ENALAPRIL [Suspect]
     Active Substance: ENALAPRIL
     Indication: HYPERTENSION
     Dosage: 10 MG, QD, 10 MG DIA
     Route: 048
     Dates: start: 20080101, end: 20171005
  4. ESCITALOPRAM [Concomitant]
     Active Substance: ESCITALOPRAM OXALATE
     Indication: PRODUCT USED FOR UNKNOWN INDICATION
     Dosage: UNK, 10 MG DIA
     Route: 048
     Dates: start: 20080101

REACTIONS (1)
  - Pancreatitis acute [Recovered/Resolved]

NARRATIVE: CASE EVENT DATE: 20171004
